FAERS Safety Report 5655494-0 (Version None)
Quarter: 2008Q1

REPORT INFORMATION
  Report Type: 
  Country: None (occurrence: None)
  Receive Date: 20080307
  Receipt Date: 20080228
  Transmission Date: 20080703
  Serious: Yes (Hospitalization, Other)
  Sender: FDA-Public Use
  Company Number: US-ELI_LILLY_AND_COMPANY-US200802006719

PATIENT
  Sex: Male

DRUGS (4)
  1. HUMULIN 70/30 [Suspect]
     Dates: start: 19920101
  2. ADVAIR DISKUS 100/50 [Concomitant]
     Indication: CHRONIC OBSTRUCTIVE PULMONARY DISEASE
  3. ALBUTEROL [Concomitant]
     Indication: CHRONIC OBSTRUCTIVE PULMONARY DISEASE
  4. OXYGEN [Concomitant]

REACTIONS (6)
  - ABDOMINAL DISTENSION [None]
  - ABDOMINAL PAIN UPPER [None]
  - CHRONIC OBSTRUCTIVE PULMONARY DISEASE [None]
  - GALLBLADDER OPERATION [None]
  - GASTRIC CANCER [None]
  - LUNG NEOPLASM MALIGNANT [None]
